FAERS Safety Report 10034098 (Version 1)
Quarter: 2014Q1

REPORT INFORMATION
  Report Type: Spontaneous
  Country: US (occurrence: None)
  Receive Date: 20140324
  Receipt Date: 20140324
  Transmission Date: 20141002
  Serious: Yes (Life-Threatening)
  Sender: FDA-Public Use
  Company Number: None

PATIENT
  Age: 66 Year
  Sex: Female
  Weight: 75.3 kg

DRUGS (1)
  1. MOVIPREP [Suspect]
     Indication: BOWEL PREPARATION
     Dosage: SPLIT DOSE (2 PACKETS) TWICE DAILY TAKEN BY MOUTH
     Route: 048
     Dates: start: 20140108

REACTIONS (5)
  - Vomiting [None]
  - Pyrexia [None]
  - Confusional state [None]
  - Dehydration [None]
  - Dyspnoea [None]
